FAERS Safety Report 6382555-3 (Version None)
Quarter: 2009Q3

REPORT INFORMATION
  Report Type: 
  Country: None (occurrence: None)
  Receive Date: 20090930
  Receipt Date: 20090928
  Transmission Date: 20100115
  Serious: Yes (Hospitalization, Disabling, Other)
  Sender: FDA-Public Use
  Company Number: A0809335A

PATIENT
  Age: 52 Year
  Sex: Female

DRUGS (6)
  1. ADVAIR DISKUS 100/50 [Suspect]
     Indication: ASTHMA
     Dosage: 1PUFF TWICE PER DAY
     Route: 055
     Dates: start: 20020101
  2. SYNTHROID [Concomitant]
  3. SINGULAIR [Concomitant]
  4. FEXOFENADINE [Concomitant]
  5. ALBUTEROL [Concomitant]
  6. ASTELIN [Concomitant]

REACTIONS (2)
  - PNEUMONIA [None]
  - WHITE BLOOD CELL COUNT INCREASED [None]
